FAERS Safety Report 9040557 (Version 1)
Quarter: 2013Q1

REPORT INFORMATION
  Report Type: Report from Study
  Country: US (occurrence: US)
  Receive Date: 20130129
  Receipt Date: 20130129
  Transmission Date: 20140127
  Serious: No
  Sender: FDA-Public Use
  Company Number: US-ABBOTT-12P-163-0888785-00

PATIENT
  Age: 64 Year
  Sex: Male

DRUGS (9)
  1. HUMIRA 40 MG/0.8 ML PEN [Suspect]
     Indication: COLITIS
     Dates: start: 20110412
  2. AZATHIOPRINE [Concomitant]
     Indication: COLITIS
     Dosage: DAILY
  3. GLIPIZIDE [Concomitant]
     Indication: DIABETES MELLITUS
  4. DOXAZOSIN [Concomitant]
     Indication: PROSTATOMEGALY
     Dosage: AT BEDTIME
  5. METOPROLOL [Concomitant]
     Indication: PRODUCT USED FOR UNKNOWN INDICATION
  6. CRESTOR [Concomitant]
     Indication: DRUG THERAPY
     Dosage: AT BEDTIME
  7. CLARITIN [Concomitant]
     Indication: HYPERSENSITIVITY
     Dosage: DAILY
  8. ASA [Concomitant]
     Indication: PROPHYLAXIS
     Dosage: DAILY
  9. PROTONIX [Concomitant]
     Indication: DYSPEPSIA
     Dosage: DAILY

REACTIONS (8)
  - Joint swelling [Not Recovered/Not Resolved]
  - Joint swelling [Not Recovered/Not Resolved]
  - Rhinorrhoea [Not Recovered/Not Resolved]
  - Eye pain [Not Recovered/Not Resolved]
  - Ear pain [Not Recovered/Not Resolved]
  - Productive cough [Not Recovered/Not Resolved]
  - Musculoskeletal stiffness [Not Recovered/Not Resolved]
  - Musculoskeletal stiffness [Not Recovered/Not Resolved]
